FAERS Safety Report 6052556-3 (Version None)
Quarter: 2009Q1

REPORT INFORMATION
  Report Type: 
  Country: None (occurrence: None)
  Receive Date: 20090121
  Receipt Date: 20090108
  Transmission Date: 20090719
  Serious: Yes (Other)
  Sender: FDA-Public Use
  Company Number: CHPA2009US00602

PATIENT
  Age: 63 Year
  Sex: Female

DRUGS (2)
  1. BENEFIBER SUGAR FREE (NCH) (WHEAT DEXTRIN) CHEWABLE TABLET [Suspect]
     Indication: NUTRITIONAL SUPPORT
     Dosage: 3330 MG, ONCE/SINGLE, ORAL
     Route: 048
     Dates: start: 20090108, end: 20090108
  2. DRUG THERAPY NOS (DRUG THERAPY NOS) [Concomitant]

REACTIONS (6)
  - DYSPNOEA [None]
  - HYPERSENSITIVITY [None]
  - NAUSEA [None]
  - PRURITUS [None]
  - RASH GENERALISED [None]
  - URTICARIA [None]
